FAERS Safety Report 4541587-8 (Version None)
Quarter: 2004Q4

REPORT INFORMATION
  Report Type: 
  Country: None (occurrence: None)
  Receive Date: 20041227
  Receipt Date: 20041221
  Transmission Date: 20050328
  Serious: Yes (Life-Threatening, Hospitalization)
  Sender: FDA-Public Use
  Company Number: 211282

PATIENT
  Age: 12 Year
  Sex: Female
  Weight: 30.1 kg

DRUGS (2)
  1. NUTROPIN AQ [Suspect]
     Indication: BODY HEIGHT BELOW NORMAL
     Dosage: 0.9 MG, 6/WEEK, SUBCUTANEOUS
     Route: 058
     Dates: start: 20030619, end: 20031007
  2. IMMUNE GLOBULIN INTRAVENOUS (HUMAN) [Concomitant]

REACTIONS (1)
  - MYOCARDITIS [None]
